FAERS Safety Report 8539990-4 (Version None)
Quarter: 2012Q3

REPORT INFORMATION
  Report Type: 
  Country: None (occurrence: None)
  Receive Date: 20120726
  Receipt Date: 20120723
  Transmission Date: 20120928
  Serious: No
  Sender: FDA-Public Use
  Company Number: US-BAYER-2012-074346

PATIENT
  Age: 37 Year
  Sex: Female
  Weight: 44.444 kg

DRUGS (6)
  1. VITAMIN D [Concomitant]
     Dosage: 400 CHEWABLE
     Route: 048
  2. FISH OIL [Concomitant]
     Dosage: UNK
     Route: 048
  3. CALCIUM +VIT D [Concomitant]
     Dosage: UNK
     Route: 048
  4. BETASERON [Suspect]
     Dosage: 0.25 MG, QOD
     Route: 058
  5. MULTIVITAMINS WITH MINERALS [MULTIVITAMINS WITH MINERALS] [Concomitant]
     Dosage: UNK
     Route: 048
  6. CRANBERRY [Concomitant]
     Dosage: UNK
     Route: 048

REACTIONS (1)
  - INFLUENZA LIKE ILLNESS [None]
